FAERS Safety Report 5905545-0 (Version None)
Quarter: 2008Q4

REPORT INFORMATION
  Report Type: 
  Country: None (occurrence: None)
  Receive Date: 20081001
  Receipt Date: 20081001
  Transmission Date: 20090506
  Serious: No
  Sender: FDA-Public Use
  Company Number: None

PATIENT
  Age: 61 Year
  Sex: Male

DRUGS (2)
  1. ZIPRASIDONE HCL [Suspect]
     Indication: MENTAL DISORDER
     Dates: start: 20080527
  2. SEVOFLURANE [Suspect]
     Indication: ANAESTHESIA
     Dates: start: 20080527

REACTIONS (4)
  - CARBON DIOXIDE DECREASED [None]
  - HYPERTHERMIA MALIGNANT [None]
  - HYPOGLYCAEMIA [None]
  - NEUROLEPTIC MALIGNANT SYNDROME [None]
